FAERS Safety Report 10441068 (Version 1)
Quarter: 2014Q3

REPORT INFORMATION
  Report Type: Spontaneous
  Country: US (occurrence: None)
  Receive Date: 20140908
  Receipt Date: 20140908
  Transmission Date: 20150326
  Serious: No
  Sender: FDA-Public Use
  Company Number: None

PATIENT
  Age: 18 Year
  Sex: Female

DRUGS (2)
  1. EZ BREATHE ATOMIZER [Suspect]
     Active Substance: DEVICE
     Indication: HYPERSENSITIVITY
  2. EZ BREATHE ATOMIZER [Suspect]
     Active Substance: DEVICE

REACTIONS (2)
  - Tremor [None]
  - Heart rate increased [None]

NARRATIVE: CASE EVENT DATE: 20140907
